FAERS Safety Report 5134487-6 (Version None)
Quarter: 2006Q4

REPORT INFORMATION
  Report Type: 
  Country: None (occurrence: None)
  Receive Date: 20061019
  Receipt Date: 20061003
  Transmission Date: 20070319
  Serious: Yes (Other)
  Sender: FDA-Public Use
  Company Number: 8019271

PATIENT
  Age: 64 Year
  Sex: Female

DRUGS (2)
  1. KEPPRA [Suspect]
     Indication: CONVULSION
     Dosage: 500 MG 2/D PO
     Route: 048
     Dates: start: 20060801
  2. TEGRETOL [Suspect]
     Indication: EPILEPSY
     Dates: start: 20010101, end: 20060801

REACTIONS (1)
  - BONE MARROW FAILURE [None]
